FAERS Safety Report 7055346-8 (Version None)
Quarter: 2010Q4

REPORT INFORMATION
  Report Type: 
  Country: None (occurrence: None)
  Receive Date: 20101019
  Receipt Date: 20101019
  Transmission Date: 20110411
  Serious: Yes (Hospitalization)
  Sender: FDA-Public Use
  Company Number: None

PATIENT
  Age: 56 Year
  Sex: Male
  Weight: 54.4 kg

DRUGS (6)
  1. VALPROIC ACID [Suspect]
     Indication: MALIGNANT FIBROUS HISTIOCYTOMA
     Dosage: 250-500MG TID PO (LESS THAN 1 CYCLE
     Route: 048
     Dates: start: 20100930, end: 20101018
  2. HYDALAZINE [Suspect]
     Indication: MALIGNANT FIBROUS HISTIOCYTOMA
     Dosage: 25MG QID PO (LESS THAN 1 CYCLE)
     Route: 048
     Dates: start: 20101013, end: 20101018
  3. ACETAMINOPHEN AND OXYCODONE HCL [Concomitant]
  4. BENZONATATE [Concomitant]
  5. METOPROLOL [Concomitant]
  6. OXYCODONE HCL [Concomitant]

REACTIONS (5)
  - ANXIETY [None]
  - DYSPNOEA [None]
  - LOSS OF CONSCIOUSNESS [None]
  - PLEURAL EFFUSION [None]
  - SYNCOPE [None]
